FAERS Safety Report 8020694-1 (Version None)
Quarter: 2012Q1

REPORT INFORMATION
  Report Type: 
  Country: None (occurrence: None)
  Receive Date: 20120103
  Receipt Date: 20111221
  Transmission Date: 20120608
  Serious: Yes (Other)
  Sender: FDA-Public Use
  Company Number: DE-ASTRAZENECA-2011SE78843

PATIENT
  Sex: Male

DRUGS (1)
  1. MOPRALPRO [Suspect]
     Indication: HYPERCHLORHYDRIA
     Dosage: 2 TABLETS/WEEK WHEN NEEDED
     Route: 048

REACTIONS (11)
  - FATIGUE [None]
  - PRURITUS [None]
  - DIZZINESS [None]
  - HYPOAESTHESIA [None]
  - UNEVALUABLE EVENT [None]
  - FORMICATION [None]
  - PALPITATIONS [None]
  - HYPOAESTHESIA ORAL [None]
  - MALAISE [None]
  - CHEST DISCOMFORT [None]
  - VERTIGO [None]
